FAERS Safety Report 25672624 (Version 3)
Quarter: 2025Q3

REPORT INFORMATION
  Report Type: Spontaneous
  Country: US (occurrence: US)
  Receive Date: 20250812
  Receipt Date: 20250927
  Transmission Date: 20251021
  Serious: Yes (Other)
  Sender: SANOFI AVENTIS
  Company Number: US-SA-2025SA235498

PATIENT
  Age: 84 Year
  Sex: Female

DRUGS (4)
  1. DUPILUMAB [Suspect]
     Active Substance: DUPILUMAB
     Indication: Dermatitis atopic
     Dosage: 300MG QOW
     Route: 058
     Dates: start: 202410
  2. INGREZZA [Suspect]
     Active Substance: VALBENAZINE DITOSYLATE
     Dates: start: 202408, end: 2025
  3. INGREZZA [Suspect]
     Active Substance: VALBENAZINE DITOSYLATE
     Dates: start: 20250808, end: 2025
  4. INGREZZA [Suspect]
     Active Substance: VALBENAZINE DITOSYLATE
     Dates: start: 2025

REACTIONS (5)
  - Tardive dyskinesia [Unknown]
  - Tremor [Unknown]
  - Eustachian tube dysfunction [Unknown]
  - Nausea [Unknown]
  - Dyspnoea [Unknown]

NARRATIVE: CASE EVENT DATE: 20250101
